FAERS Safety Report 5227934-2 (Version None)
Quarter: 2007Q1

REPORT INFORMATION
  Report Type: 
  Country: None (occurrence: None)
  Receive Date: 20061201
  Receipt Date: 20060323
  Transmission Date: 20070707
  Serious: Yes (Other)
  Sender: FDA-Public Use
  Company Number: 2006-140755-NL

PATIENT
  Age: 36 Year
  Sex: Female

DRUGS (1)
  1. NUVARING [Suspect]
     Indication: CONTRACEPTION
     Dosage: VAGINAL, 3 WEEKS IN, 1 WEEK OUT
     Route: 067
     Dates: start: 20060201, end: 20060301

REACTIONS (1)
  - ECTOPIC PREGNANCY [None]
